FAERS Safety Report 7606280-3 (Version None)
Quarter: 2011Q3

REPORT INFORMATION
  Report Type: 
  Country: None (occurrence: None)
  Receive Date: 20110713
  Receipt Date: 20110630
  Transmission Date: 20111222
  Serious: Yes (Other)
  Sender: FDA-Public Use
  Company Number: US-BAYER-201032086NA

PATIENT
  Age: 22 Year
  Sex: Female
  Weight: 76.19 kg

DRUGS (1)
  1. YASMIN [Suspect]
     Indication: PRODUCT USED FOR UNKNOWN INDICATION
     Dosage: UNK
     Dates: start: 20050501, end: 20080501

REACTIONS (4)
  - GASTROINTESTINAL PAIN [None]
  - CHOLELITHIASIS [None]
  - DIARRHOEA [None]
  - ABDOMINAL PAIN [None]
